FAERS Safety Report 4623354-X (Version None)
Quarter: 2005Q1

REPORT INFORMATION
  Report Type: 
  Country: None (occurrence: None)
  Receive Date: 20050330
  Receipt Date: 20050310
  Transmission Date: 20050727
  Serious: Yes (Hospitalization)
  Sender: FDA-Public Use
  Company Number: NO-MERCK-0503NOR00036

PATIENT
  Age: 55 Year
  Sex: Male

DRUGS (3)
  1. VIOXX [Suspect]
     Indication: ARTHRALGIA
     Route: 048
     Dates: start: 20000501, end: 20000604
  2. VIOXX [Suspect]
     Indication: OSTEOARTHRITIS
     Route: 048
     Dates: start: 20000501, end: 20000604
  3. CANDESARTAN CILEXETIL [Concomitant]
     Indication: HYPERTENSION
     Route: 048
     Dates: start: 19990101

REACTIONS (13)
  - ARTHRALGIA [None]
  - ARTHRITIS [None]
  - CHEST PAIN [None]
  - CORONARY ARTERY STENOSIS [None]
  - DIARRHOEA [None]
  - FATIGUE [None]
  - GASTROENTERITIS [None]
  - GLOSSODYNIA [None]
  - MYALGIA [None]
  - MYOCARDIAL INFARCTION [None]
  - PALPITATIONS [None]
  - PULSE PRESSURE DECREASED [None]
  - VENTRICULAR EXTRASYSTOLES [None]
